FAERS Safety Report 8612619 (Version 7)
Quarter: 2012Q4

REPORT INFORMATION
  Report Type: 
  Country: US (occurrence: US)
  Receive Date: 20120613
  Receipt Date: 20120828
  Transmission Date: 20130627
  Serious: No
  Sender: FDA-Public Use
  Company Number: US-PFIZER INC-2012136564

PATIENT
  Age: 57 Year
  Sex: Female
  Weight: 61.2 kg

DRUGS (5)
  1. PREMPRO [Suspect]
     Indication: POSTMENOPAUSE
     Dosage: 1 DF, 1x/day (0.625/2.5 mg)
     Route: 048
     Dates: end: 201205
  2. PREMPHASE [Suspect]
     Indication: POSTMENOPAUSE
     Dosage: 1 DF, 1x/day (0.625/5 mg)
     Route: 048
     Dates: start: 20120613
  3. OMEPRAZOLE [Concomitant]
     Indication: GASTROOESOPHAGEAL REFLUX DISEASE
     Dosage: 10 mg, 1x/day
  4. MICARDIS [Concomitant]
     Indication: HYPERTENSION
     Dosage: 40 mg, 1x/day
  5. MOTRIN [Concomitant]
     Dosage: UNK

REACTIONS (2)
  - Medication residue [Unknown]
  - Malabsorption [Unknown]
